FAERS Safety Report 16510968 (Version 1)
Quarter: 2019Q3

REPORT INFORMATION
  Report Type: Spontaneous
  Country: FR (occurrence: FR)
  Receive Date: 20190702
  Receipt Date: 20190702
  Transmission Date: 20191004
  Serious: Yes (Other)
  Sender: FDA-Public Use
  Company Number: FR-BEH-2019103632

PATIENT
  Age: 15 Year
  Sex: Female
  Weight: 65.9 kg

DRUGS (3)
  1. HIZENTRA [Suspect]
     Active Substance: HUMAN IMMUNOGLOBULIN G
     Dosage: 15 GRAM, TOT
     Route: 058
     Dates: start: 20190603, end: 20190603
  2. HIZENTRA [Suspect]
     Active Substance: HUMAN IMMUNOGLOBULIN G
     Dosage: 15 GRAM, TOT
     Route: 058
     Dates: start: 20190603, end: 20190603
  3. HIZENTRA [Suspect]
     Active Substance: HUMAN IMMUNOGLOBULIN G
     Indication: ARTERITIS
     Dosage: 15 GRAM, TOT
     Route: 058
     Dates: start: 20190603, end: 20190603

REACTIONS (3)
  - Erythema induratum [Not Recovered/Not Resolved]
  - Product use in unapproved indication [Unknown]
  - No adverse event [Unknown]

NARRATIVE: CASE EVENT DATE: 20190603
